FAERS Safety Report 14230574 (Version 3)
Quarter: 2018Q1

REPORT INFORMATION
  Report Type: Report from Study
  Country: US (occurrence: US)
  Receive Date: 20171128
  Receipt Date: 20180118
  Transmission Date: 20180508
  Serious: Yes (Hospitalization)
  Sender: FDA-Public Use
  Company Number: US-ASTELLAS-2017US048688

PATIENT
  Age: 83 Year
  Sex: Male
  Weight: 64 kg

DRUGS (13)
  1. ABIRATERONE [Suspect]
     Active Substance: ABIRATERONE
     Route: 048
  2. FLU STOP [Concomitant]
     Indication: INFLUENZA IMMUNISATION
     Dosage: 0.5 ML, UNKNOWN FREQ.
     Route: 030
     Dates: start: 20170928, end: 20170928
  3. PREDNISONE. [Suspect]
     Active Substance: PREDNISONE
     Route: 048
  4. FLOMAX [Concomitant]
     Active Substance: TAMSULOSIN HYDROCHLORIDE
     Indication: BENIGN PROSTATIC HYPERPLASIA
     Dosage: 0.4 MG, ONCE DAILY
     Route: 048
     Dates: start: 20150730
  5. ELIGARD [Concomitant]
     Active Substance: LEUPROLIDE ACETATE
     Indication: BLOOD GONADOTROPHIN RELEASING HORMONE
     Dosage: 45 MG, EVERY 6 MONTHS
     Route: 058
     Dates: start: 20090226
  6. MAGNESIA                           /00123201/ [Concomitant]
     Active Substance: MAGNESIUM HYDROXIDE
     Indication: HYPOMAGNESAEMIA
     Route: 048
     Dates: start: 20170928
  7. ENZALUTAMIDE [Suspect]
     Active Substance: ENZALUTAMIDE
     Route: 048
     Dates: start: 20171026
  8. ABIRATERONE [Suspect]
     Active Substance: ABIRATERONE
     Indication: HORMONE-REFRACTORY PROSTATE CANCER
     Route: 048
     Dates: start: 20151005
  9. MG [Concomitant]
     Active Substance: MAGNESIUM
     Indication: HYPOMAGNESAEMIA
     Route: 048
     Dates: start: 20161202
  10. ENZALUTAMIDE [Suspect]
     Active Substance: ENZALUTAMIDE
     Indication: HORMONE-REFRACTORY PROSTATE CANCER
     Route: 048
     Dates: start: 20151005, end: 20171022
  11. PREDNISONE. [Suspect]
     Active Substance: PREDNISONE
     Indication: HORMONE-REFRACTORY PROSTATE CANCER
     Route: 048
     Dates: start: 20151005
  12. METHAZOLAMIDE. [Concomitant]
     Active Substance: METHAZOLAMIDE
     Indication: GLAUCOMA
     Route: 048
     Dates: start: 200504
  13. FLOMAX [Concomitant]
     Active Substance: TAMSULOSIN HYDROCHLORIDE
     Indication: URINARY RETENTION

REACTIONS (1)
  - Large intestinal obstruction [Recovered/Resolved]

NARRATIVE: CASE EVENT DATE: 20171022
